FAERS Safety Report 12701897 (Version 1)
Quarter: 2016Q3

REPORT INFORMATION
  Report Type: Spontaneous
  Country: US (occurrence: US)
  Receive Date: 20160831
  Receipt Date: 20160831
  Transmission Date: 20161109
  Serious: No
  Sender: FDA-Public Use
  Company Number: US-JAZZ-2016-US-007610

PATIENT
  Sex: Female

DRUGS (39)
  1. LIPITOR [Concomitant]
     Active Substance: ATORVASTATIN CALCIUM
  2. OYSTER SHELL CALCIUM +D [Concomitant]
  3. XYREM [Suspect]
     Active Substance: SODIUM OXYBATE
     Dosage: 2 G, BID
     Route: 048
     Dates: start: 201504
  4. BENTYL [Concomitant]
     Active Substance: DICYCLOMINE HYDROCHLORIDE
  5. DIOVAN [Concomitant]
     Active Substance: VALSARTAN
  6. OMEPRAZOLE. [Concomitant]
     Active Substance: OMEPRAZOLE
  7. RANITIDINE. [Concomitant]
     Active Substance: RANITIDINE
  8. URSODIOL. [Concomitant]
     Active Substance: URSODIOL
  9. VITAMIN C [Concomitant]
     Active Substance: ASCORBIC ACID
  10. POTASSIUM GLUCONATE [Concomitant]
     Active Substance: POTASSIUM GLUCONATE
  11. ATENOLOL. [Concomitant]
     Active Substance: ATENOLOL
  12. FLONASE [Concomitant]
     Active Substance: FLUTICASONE PROPIONATE
  13. GABAPENTIN. [Concomitant]
     Active Substance: GABAPENTIN
  14. CYMBALTA [Concomitant]
     Active Substance: DULOXETINE HYDROCHLORIDE
  15. L-LYSINE [Concomitant]
     Active Substance: LYSINE
  16. LASIX [Concomitant]
     Active Substance: FUROSEMIDE
  17. OXYBUTYNIN CHLORIDE. [Concomitant]
     Active Substance: OXYBUTYNIN CHLORIDE
  18. VITAMIN D3 [Concomitant]
     Active Substance: CHOLECALCIFEROL
  19. TURMERIC [Concomitant]
     Active Substance: TURMERIC
  20. MELATONIN [Concomitant]
     Active Substance: MELATONIN
  21. NOVOLOG [Concomitant]
     Active Substance: INSULIN ASPART
  22. THERMAZENE [Concomitant]
     Active Substance: SILVER SULFADIAZINE
  23. VICODIN [Concomitant]
     Active Substance: ACETAMINOPHEN\HYDROCODONE BITARTRATE
  24. VITAMIN B COMPLEX [Concomitant]
     Active Substance: CYANOCOBALAMIN\DEXPANTHENOL\NIACINAMIDE\PYRIDOXINE HYDROCHLORIDE\RIBOFLAVIN 5^-PHOSPHATE SODIUM\THIAMINE HYDROCHLORIDE\VITAMIN B COMPLEX
  25. MAGNESIUM [Concomitant]
     Active Substance: MAGNESIUM
  26. MIRALAX [Concomitant]
     Active Substance: POLYETHYLENE GLYCOL 3350
  27. XYREM [Suspect]
     Active Substance: SODIUM OXYBATE
     Indication: NARCOLEPSY
     Dosage: 3 G, BID
     Route: 048
     Dates: start: 201409, end: 201410
  28. ALOE VERA [Concomitant]
     Active Substance: ALOE VERA LEAF
  29. GABAPENTIN. [Concomitant]
     Active Substance: GABAPENTIN
  30. LIDOCAINE. [Concomitant]
     Active Substance: LIDOCAINE
  31. MULTIPLE VITAMINS [Concomitant]
     Active Substance: VITAMINS
  32. NORCO [Concomitant]
     Active Substance: ACETAMINOPHEN\HYDROCODONE BITARTRATE
  33. PROBIOTIC [Concomitant]
     Active Substance: PROBIOTICS NOS
  34. XYREM [Suspect]
     Active Substance: SODIUM OXYBATE
     Dosage: 3.5 G, BID
     Route: 048
     Dates: start: 201410, end: 201504
  35. KLONOPIN [Concomitant]
     Active Substance: CLONAZEPAM
  36. GARLIC. [Concomitant]
     Active Substance: GARLIC
  37. LEVEMIR [Concomitant]
     Active Substance: INSULIN DETEMIR
  38. NUVIGIL [Concomitant]
     Active Substance: ARMODAFINIL
  39. SINGULAIR [Concomitant]
     Active Substance: MONTELUKAST SODIUM

REACTIONS (1)
  - Incorrect dose administered [Unknown]
